FAERS Safety Report 8895977 (Version 2)
Quarter: 2012Q4

REPORT INFORMATION
  Report Type: Report from Study
  Country: GB (occurrence: GB)
  Receive Date: 20121108
  Receipt Date: 20121220
  Transmission Date: 20130627
  Serious: Yes (Hospitalization, Disabling, Other)
  Sender: FDA-Public Use
  Company Number: GB-PFIZER INC-2012274486

PATIENT
  Age: 59 Year
  Sex: Female

DRUGS (63)
  1. DOXORUBICIN [Suspect]
     Indication: NODULAR (FOLLICULAR) LYMPHOMA
     Dosage: Last dose prior to SAE : 100mg on 14Jun2012 (1 in 3 wk)
     Route: 042
     Dates: start: 20120312
  2. CYCLOPHOSPHAMIDE [Suspect]
     Indication: NODULAR (FOLLICULAR) LYMPHOMA
     Dosage: Last dose prior to SAE : 1500mg on 14Jun2012 (1 in 3 wk)
     Route: 042
     Dates: start: 20120312
  3. PREDNISONE [Suspect]
     Indication: NODULAR (FOLLICULAR) LYMPHOMA
     Dosage: Last dose prior to SAE : 100mg on 14Jun2012 (1 in 3 wk)
     Route: 048
     Dates: start: 20120312
  4. VINCRISTINE [Suspect]
     Indication: NODULAR (FOLLICULAR) LYMPHOMA
     Dosage: Last dose prior to SAE: 2mg on 14Jun2012 (1 in 3 wk)
     Route: 042
     Dates: start: 20120312
  5. OBINUTUZUMAB [Suspect]
     Indication: NODULAR (FOLLICULAR) LYMPHOMA
     Dosage: 250 ml, every 3 weeks
     Route: 042
     Dates: start: 20120312
  6. CO-CODAMOL [Concomitant]
     Indication: OSTEOARTHRITIS
  7. LANSOPRAZOLE [Concomitant]
     Indication: HIATUS HERNIA
  8. QUININE SULFATE [Concomitant]
     Indication: NIGHT SWEATS
     Dosage: UNK
     Dates: start: 200504
  9. HORMONIN [Concomitant]
     Indication: MENOPAUSAL SYMPTOMS
     Dosage: UNK
     Dates: start: 201107
  10. NAPROXEN [Concomitant]
     Indication: OSTEOARTHRITIS
     Dosage: UNK
     Dates: start: 200906
  11. SERTRALINE [Concomitant]
     Indication: DEPRESSION
     Dosage: UNK
     Dates: start: 201006
  12. SERTRALINE [Concomitant]
     Indication: ANXIETY
     Dosage: UNK
     Dates: start: 20120613, end: 20120726
  13. ONDANSETRON [Concomitant]
     Indication: PROPHYLAXIS
     Dosage: UNK
     Dates: start: 20120312
  14. ONDANSETRON [Concomitant]
     Dosage: UNK
     Dates: start: 20120710, end: 20120712
  15. PARACETAMOL [Concomitant]
     Indication: ARTHRITIC PAINS
     Dosage: UNK
     Dates: start: 20120312
  16. DOMPERIDONE [Concomitant]
     Indication: NAUSEA
     Dosage: UNK
     Dates: start: 20120312
  17. ALLOPURINOL [Concomitant]
     Dosage: UNK
     Dates: start: 20120309
  18. NYSTATIN [Concomitant]
     Indication: ORAL THRUSH
     Dosage: UNK
     Dates: start: 20120609, end: 20120921
  19. CYCLIZINE [Concomitant]
     Indication: NAUSEA
     Dosage: UNK
     Dates: start: 20120604
  20. METOCLOPRAMIDE [Concomitant]
     Indication: NAUSEA
     Dosage: UNK
     Dates: start: 20120410, end: 20120927
  21. CIPROFLOXACIN [Concomitant]
     Indication: INFECTION
     Dosage: UNK
     Dates: start: 20120815, end: 20120910
  22. AMOXICILLIN TRIHYDRATE/CLAVULANATE POTASSIUM [Concomitant]
     Indication: URINARY TRACT INFECTION
     Dosage: UNK
     Dates: start: 20120827, end: 20120831
  23. FILGRASTIM [Concomitant]
     Indication: NEUTROPENIA
     Dosage: UNK
     Dates: start: 20120712, end: 20120712
  24. FILGRASTIM [Concomitant]
     Dosage: UNK
     Dates: start: 20120830, end: 20120903
  25. AMILORIDE [Concomitant]
     Indication: FLUID RETENTION
     Dosage: UNK
     Dates: start: 20120713, end: 20120817
  26. SLOW-K [Concomitant]
     Indication: POTASSIUM LOW
     Dosage: UNK
     Dates: start: 20120808, end: 20120810
  27. TEICOPLANIN [Concomitant]
     Indication: INFECTION
     Dosage: UNK
     Dates: start: 20120624, end: 20120705
  28. MEROPENEM [Concomitant]
     Indication: INFECTION
     Dosage: UNK
     Dates: start: 20120711, end: 20120810
  29. VANCOMYCIN [Concomitant]
     Indication: INFECTION
     Dosage: UNK
     Dates: start: 20120705, end: 20120712
  30. VANCOMYCIN [Concomitant]
     Dosage: UNK
     Dates: start: 20120705, end: 20120705
  31. ENOXAPARIN [Concomitant]
     Indication: INFECTION
     Dosage: UNK
     Dates: start: 20120629, end: 20120714
  32. LORAZEPAM [Concomitant]
     Indication: ANXIETY
     Dosage: UNK
     Dates: start: 20120712, end: 20120713
  33. FLUCONAZOLE [Concomitant]
     Indication: INFECTION
     Dosage: UNK
     Dates: start: 20120713, end: 20120718
  34. FERROUS SULPHATE [Concomitant]
     Indication: ANAEMIA
     Dosage: UNK
     Dates: start: 20120626, end: 20120711
  35. FLUCLOXACILLIN [Concomitant]
     Dosage: UNK
     Dates: start: 20120609, end: 20120825
  36. FLUCLOXACILLIN [Concomitant]
     Dosage: UNK
     Dates: start: 20120701, end: 20120702
  37. AMBISOME [Concomitant]
     Dosage: UNK
     Dates: start: 20120713, end: 20120713
  38. ACICLOVIR [Concomitant]
     Dosage: UNK
     Dates: start: 20120711, end: 20120727
  39. PREDNISOLONE [Concomitant]
     Dosage: UNK
     Dates: start: 20120312
  40. CHLORPHENAMINE [Concomitant]
     Indication: ERYTHEMA
     Dosage: UNK
     Dates: start: 20120714
  41. HYDROCORTISONE [Concomitant]
     Dosage: UNK
     Dates: start: 20120708
  42. CHLORHEXIDINE [Concomitant]
     Indication: MUCOSITIS
     Dosage: UNK
     Dates: start: 20120711, end: 20120727
  43. SANDO K [Concomitant]
     Indication: POTASSIUM LOW
     Dosage: UNK
     Dates: start: 20120714, end: 20120808
  44. CALCIUM GLUCONATE [Concomitant]
     Indication: CALCIUM LOW
     Dosage: UNK
     Dates: start: 20120722, end: 20120722
  45. FUROSEMIDE [Concomitant]
     Indication: EDEMA
     Dosage: UNK
     Dates: start: 20120724, end: 20120724
  46. FUROSEMIDE [Concomitant]
     Dosage: UNK
     Dates: start: 20120730, end: 20120730
  47. LEVOPROMAZIN [Concomitant]
     Indication: ANXIETY
     Dosage: UNK
     Dates: start: 20120718, end: 20120718
  48. BLOOD, WHOLE [Concomitant]
     Indication: ANAEMIA
     Dosage: UNK
     Dates: start: 20120624, end: 20120624
  49. BLOOD, WHOLE [Concomitant]
     Dosage: UNK
     Dates: start: 20120814, end: 20120814
  50. ACTRAPID [Concomitant]
     Indication: BLOOD GLUCOSE INCREASED
     Dosage: UNK
     Dates: start: 20120727, end: 20120727
  51. HALOPERIDOL [Concomitant]
     Indication: NAUSEA
     Dosage: UNK
     Dates: start: 20120904, end: 20120926
  52. METRONIDAZOLE [Concomitant]
     Indication: INFECTION
     Dosage: UNK
     Dates: start: 20120911, end: 20120920
  53. MAGNESIUM [Concomitant]
     Indication: MAGNESIUM LOW
     Dosage: UNK
     Dates: start: 20120624, end: 20120624
  54. DEXAMETHASONE [Concomitant]
     Dosage: UNK
     Dates: start: 20120702, end: 20120702
  55. FOLIC ACID [Concomitant]
     Dosage: UNK
     Dates: start: 20120624, end: 20120704
  56. PLATELETS, HUMAN BLOOD [Concomitant]
     Indication: LOW PLATELETS
     Dosage: UNK
     Dates: start: 20120804, end: 20120804
  57. MIDAZOLAM [Concomitant]
     Indication: ANXIETY
     Dosage: UNK
     Dates: start: 20120731, end: 20120731
  58. METARAMINOL [Concomitant]
     Indication: HYPOTENSION
     Dosage: UNK
     Dates: start: 20120731, end: 20120731
  59. SPIRONOLACTONE [Concomitant]
     Indication: EDEMA
     Dosage: UNK
     Dates: start: 20120730, end: 20120803
  60. GLUCOSE [Concomitant]
     Indication: GLUCOSE LOW
     Dosage: UNK
     Dates: start: 20120801, end: 20120801
  61. CORSODYL [Concomitant]
     Dosage: UNK
     Dates: start: 20120625, end: 20120627
  62. CANESTEN [Concomitant]
     Indication: THRUSH
     Dosage: UNK
     Dates: start: 20120708, end: 20120726
  63. ORAMORPH [Concomitant]
     Route: 048

REACTIONS (3)
  - Lung infection [Recovered/Resolved]
  - Respiratory failure [Recovered/Resolved]
  - Pulmonary embolism [Recovered/Resolved]
